FAERS Safety Report 9704163 (Version 1)
Quarter: 2013Q4

REPORT INFORMATION
  Report Type: Spontaneous
  Country: US (occurrence: US)
  Receive Date: 20131122
  Receipt Date: 20131122
  Transmission Date: 20140711
  Serious: No
  Sender: FDA-Public Use
  Company Number: US-GLAXOSMITHKLINE-A1038211A

PATIENT
  Sex: Female

DRUGS (11)
  1. BUPROPION HYDROCHLORIDE [Suspect]
     Indication: DEPRESSION
     Dosage: 200MG TWICE PER DAY
     Route: 048
     Dates: start: 2012, end: 2012
  2. TRAZODONE [Concomitant]
  3. REMERON [Concomitant]
  4. CLONAZEPAM [Concomitant]
  5. VENLAFAXINE [Concomitant]
  6. ZINC [Concomitant]
  7. CALCIUM [Concomitant]
  8. FIBER [Concomitant]
  9. BIOTIN [Concomitant]
  10. ASPIRIN [Concomitant]
  11. CENTRUM [Concomitant]

REACTIONS (5)
  - Drug ineffective [Recovered/Resolved]
  - Depressive symptom [Unknown]
  - Crying [Unknown]
  - Anxiety [Unknown]
  - Condition aggravated [Unknown]
